FAERS Safety Report 21529705 (Version 1)
Quarter: 2022Q4

REPORT INFORMATION
  Report Type: Report from Study
  Country: BR (occurrence: BR)
  Receive Date: 20221031
  Receipt Date: 20221031
  Transmission Date: 20230113
  Serious: Yes (Hospitalization)
  Sender: FDA-Public Use
  Company Number: BR-MYLANLABS-2022M1117578

PATIENT
  Age: 65 Year
  Sex: Female
  Weight: 41 kg

DRUGS (3)
  1. VENLAFAXINE HYDROCHLORIDE [Suspect]
     Active Substance: VENLAFAXINE HYDROCHLORIDE
     Indication: Depression
     Dosage: 37.5 MILLIGRAM, QD
     Route: 048
     Dates: start: 20221003, end: 20221009
  2. VENLAFAXINE HYDROCHLORIDE [Suspect]
     Active Substance: VENLAFAXINE HYDROCHLORIDE
     Dosage: 75 MILLIGRAM, QD (1 TABLET IN THE MORNING)
     Route: 048
     Dates: start: 202210, end: 20221016
  3. MIRTAZAPINE [Concomitant]
     Active Substance: MIRTAZAPINE
     Indication: Depression
     Dosage: 45 MILLIGRAM, HS (45MG, ONCE A DAY (1 TABLET AT NIGHT))
     Route: 065

REACTIONS (2)
  - Ischaemia [Unknown]
  - Coma [Unknown]

NARRATIVE: CASE EVENT DATE: 20221016
